FAERS Safety Report 20317500 (Version 2)
Quarter: 2023Q2

REPORT INFORMATION
  Report Type: Spontaneous
  Country: US (occurrence: US)
  Receive Date: 20220110
  Receipt Date: 20230517
  Transmission Date: 20230721
  Serious: No
  Sender: FDA-Public Use
  Company Number: US-TEVA-2021-US-1993978

PATIENT
  Age: 82 Year
  Sex: Female

DRUGS (2)
  1. QVAR REDIHALER [Suspect]
     Active Substance: BECLOMETHASONE DIPROPIONATE
     Indication: Product used for unknown indication
     Dosage: STRENGTH: 80 MCG
     Route: 065
  2. QVAR REDIHALER [Suspect]
     Active Substance: BECLOMETHASONE DIPROPIONATE
     Dosage: STRENGTH: 80 MCG

REACTIONS (6)
  - Device delivery system issue [Unknown]
  - Product taste abnormal [Unknown]
  - Urticaria [Unknown]
  - Accidental exposure to product [Unknown]
  - Device issue [Unknown]
  - Eye contusion [Unknown]

NARRATIVE: CASE EVENT DATE: 20230101
